FAERS Safety Report 9015569 (Version 1)
Quarter: 2013Q1

REPORT INFORMATION
  Report Type: Report from Study
  Country: US (occurrence: US)
  Receive Date: 20130116
  Receipt Date: 20130116
  Transmission Date: 20140127
  Serious: Yes (Death, Hospitalization)
  Sender: FDA-Public Use
  Company Number: US-JNJFOC-20130103861

PATIENT
  Age: 78 None
  Sex: Female
  Weight: 71.67 kg

DRUGS (4)
  1. REMICADE [Suspect]
     Indication: RHEUMATOID ARTHRITIS
     Route: 042
  2. REMICADE [Suspect]
     Indication: RHEUMATOID ARTHRITIS
     Route: 042
     Dates: start: 20120615
  3. METHOTREXATE [Concomitant]
     Dosage: 3-5 CC
     Route: 030
  4. UNKNOWN MEDICATION [Concomitant]
     Route: 065

REACTIONS (3)
  - Hepatic cirrhosis [Fatal]
  - Gastric ulcer perforation [Unknown]
  - Intestinal perforation [Not Recovered/Not Resolved]
